FAERS Safety Report 8408314-5 (Version None)
Quarter: 2012Q2

REPORT INFORMATION
  Report Type: 
  Country: None (occurrence: None)
  Receive Date: 20120604
  Receipt Date: 20120528
  Transmission Date: 20120825
  Serious: Yes (Death)
  Sender: FDA-Public Use
  Company Number: US-JNJFOC-20120521060

PATIENT
  Age: 52 Year
  Sex: Female

DRUGS (9)
  1. CETUXIMAB [Suspect]
     Indication: SQUAMOUS CELL CARCINOMA
     Route: 065
  2. RADIATION THERAPY NOS [Suspect]
     Indication: SQUAMOUS CELL CARCINOMA
     Route: 065
  3. DOXORUBICIN HYDROCHLORIDE [Suspect]
     Indication: OVARIAN CANCER RECURRENT
     Dosage: EVERY 5-6 WEEKS (TOTAL CUMMULATIVE DOSE, LESSER THAN 3,000 MG/M2)
     Route: 042
     Dates: end: 20090101
  4. METHOTREXATE [Suspect]
     Indication: SQUAMOUS CELL CARCINOMA
     Route: 065
  5. FLUOROURACIL [Suspect]
     Indication: SQUAMOUS CELL CARCINOMA
     Route: 065
  6. CISPLATIN [Suspect]
     Indication: SQUAMOUS CELL CARCINOMA
     Route: 065
  7. DOXORUBICIN HYDROCHLORIDE [Suspect]
     Dosage: MONTHLY CYCLES
     Route: 042
     Dates: start: 20020801
  8. CARBOPLATIN [Suspect]
     Indication: OVARIAN CANCER RECURRENT
     Dosage: FOUR CYCLES
     Route: 065
     Dates: start: 20040101
  9. PACLITAXEL [Suspect]
     Indication: SQUAMOUS CELL CARCINOMA
     Route: 065

REACTIONS (5)
  - DISEASE RECURRENCE [None]
  - NECK MASS [None]
  - OBSTRUCTIVE AIRWAYS DISORDER [None]
  - LIP AND/OR ORAL CAVITY CANCER [None]
  - HYPERCALCAEMIA [None]
